FAERS Safety Report 21149546 (Version 1)
Quarter: 2022Q3

REPORT INFORMATION
  Report Type: Spontaneous
  Country: US (occurrence: US)
  Receive Date: 20220729
  Receipt Date: 20220729
  Transmission Date: 20221026
  Serious: No
  Sender: FDA-Public Use
  Company Number: US-NOVOPROD-930994

PATIENT
  Sex: Female
  Weight: 78.912 kg

DRUGS (1)
  1. OZEMPIC [Suspect]
     Active Substance: SEMAGLUTIDE
     Indication: Product used for unknown indication
     Dosage: UNK
     Route: 058

REACTIONS (5)
  - Anxiety [Unknown]
  - Ageusia [Unknown]
  - Muscle strength abnormal [Unknown]
  - Decreased appetite [Unknown]
  - Weight decreased [Unknown]
